FAERS Safety Report 15571204 (Version 3)
Quarter: 2018Q4

REPORT INFORMATION
  Report Type: Spontaneous
  Country: JP (occurrence: JP)
  Receive Date: 20181031
  Receipt Date: 20181217
  Transmission Date: 20190205
  Serious: Yes (Other)
  Sender: FDA-Public Use
  Company Number: JP-SA-2018SA285426

PATIENT
  Age: 6 Decade
  Sex: Male

DRUGS (1)
  1. DUPIXENT [Suspect]
     Active Substance: DUPILUMAB
     Indication: DERMATITIS ATOPIC
     Dosage: DAILY DOSE: 300MG
     Route: 058
     Dates: start: 20180623

REACTIONS (3)
  - Treponema test positive [Unknown]
  - Syphilis [Unknown]
  - Antibody test abnormal [Unknown]

NARRATIVE: CASE EVENT DATE: 201809
